FAERS Safety Report 4615447-8 (Version None)
Quarter: 2005Q1

REPORT INFORMATION
  Report Type: 
  Country: None (occurrence: None)
  Receive Date: 20050317
  Receipt Date: 20050304
  Transmission Date: 20050727
  Serious: Yes (Other)
  Sender: FDA-Public Use
  Company Number: 2005033207

PATIENT
  Age: 71 Year
  Sex: Male
  Weight: 79 kg

DRUGS (8)
  1. FRAGMIN [Suspect]
     Indication: THROMBOSIS PROPHYLAXIS
     Dosage: 5000 I.U. (DAILY
     Dates: start: 20050101, end: 20050218
  2. ACETYLSALICYLATE LYSINE [Concomitant]
  3. ATORVASTATIN CALCIUM [Concomitant]
  4. LISINOPRIL [Concomitant]
  5. INSULIN HYMAN (INSULIN HUMAN) [Concomitant]
  6. HUMAN MIXTARD (INSULIN HUMAN, INSULIN HUMAN INJECTION, ISOPHANE) [Concomitant]
  7. AMITRIPTYLINE HYDROCHLORIDE [Concomitant]
  8. BUFLOMEDIL (BUFLOMEDIL) [Concomitant]

REACTIONS (3)
  - LOWER LIMB FRACTURE [None]
  - PRURITUS [None]
  - THROMBOCYTHAEMIA [None]
